FAERS Safety Report 8925257 (Version 1)
Quarter: 2012Q4

REPORT INFORMATION
  Report Type: 
  Country: GB (occurrence: GB)
  Receive Date: 20121126
  Receipt Date: 20121126
  Transmission Date: 20130627
  Serious: Yes (Other)
  Sender: FDA-Public Use
  Company Number: GB-PFIZER INC-2012289665

PATIENT
  Age: 64 Year
  Sex: Female

DRUGS (2)
  1. DETRUSITOL [Suspect]
     Dosage: UNK
  2. TOLTERODINE TARTRATE [Suspect]
     Indication: OVERACTIVE BLADDER
     Dosage: 4 mg, 1x/day
     Route: 048
     Dates: start: 20121019, end: 20121021

REACTIONS (4)
  - Product substitution issue [Unknown]
  - Dark circles under eyes [Unknown]
  - Swelling face [Recovering/Resolving]
  - Fatigue [Unknown]
